FAERS Safety Report 9547083 (Version 2)
Quarter: 2013Q4

REPORT INFORMATION
  Report Type: Spontaneous
  Country: US (occurrence: None)
  Receive Date: 20130920
  Receipt Date: 20131101
  Transmission Date: 20140711
  Serious: Yes (Other)
  Sender: FDA-Public Use
  Company Number: 2013-US-000472

PATIENT
  Age: 36 Year
  Sex: Female

DRUGS (2)
  1. XYREM [Suspect]
     Indication: NARCOLEPSY
     Route: 048
     Dates: start: 20130724
  2. XYREM [Suspect]
     Indication: CATAPLEXY
     Route: 048
     Dates: start: 20130724

REACTIONS (8)
  - Pulse absent [None]
  - Dyspnoea [None]
  - Somnolence [None]
  - Heart rate decreased [None]
  - Memory impairment [None]
  - Pain in extremity [None]
  - Somnolence [None]
  - Pain in extremity [None]
